FAERS Safety Report 5569676-X (Version None)
Quarter: 2007Q4

REPORT INFORMATION
  Report Type: 
  Country: None (occurrence: None)
  Receive Date: 20071220
  Receipt Date: 20071218
  Transmission Date: 20080405
  Serious: Yes (Other)
  Sender: FDA-Public Use
  Company Number: B0500311A

PATIENT
  Age: 3 Year
  Sex: Male

DRUGS (1)
  1. HYCAMTIN [Suspect]
     Indication: RHABDOMYOSARCOMA
     Route: 042
     Dates: start: 20071212, end: 20071212

REACTIONS (3)
  - INJECTION SITE PAIN [None]
  - OEDEMA [None]
  - POLYURIA [None]
